FAERS Safety Report 13297649 (Version 1)
Quarter: 2017Q1

REPORT INFORMATION
  Report Type: Spontaneous
  Country: US (occurrence: US)
  Receive Date: 20170306
  Receipt Date: 20170306
  Transmission Date: 20170428
  Serious: No
  Sender: FDA-Public Use
  Company Number: US-PFIZER INC-2017088865

PATIENT
  Sex: Female

DRUGS (1)
  1. XELJANZ XR [Suspect]
     Active Substance: TOFACITINIB CITRATE
     Dosage: 11 MG, UNK

REACTIONS (11)
  - Weight increased [Unknown]
  - Fatigue [Unknown]
  - Tremor [Unknown]
  - Back pain [Unknown]
  - Musculoskeletal stiffness [Unknown]
  - Sleep disorder [Unknown]
  - Joint swelling [Unknown]
  - Abdominal discomfort [Unknown]
  - Arthralgia [Unknown]
  - Paraesthesia [Unknown]
  - Skin discolouration [Unknown]
